FAERS Safety Report 25511478 (Version 1)
Quarter: 2025Q3

REPORT INFORMATION
  Report Type: Spontaneous
  Country: US (occurrence: US)
  Receive Date: 20250703
  Receipt Date: 20250703
  Transmission Date: 20251020
  Serious: No
  Sender: RADIUS PHARM
  Company Number: US-RADIUS HEALTH INC.-2024US007071

PATIENT
  Sex: Female

DRUGS (2)
  1. TYMLOS [Suspect]
     Active Substance: ABALOPARATIDE
     Indication: Osteogenesis imperfecta
     Route: 058
     Dates: start: 202407
  2. ESTRADIOL [Suspect]
     Active Substance: ESTRADIOL
     Indication: Product used for unknown indication
     Route: 065

REACTIONS (7)
  - Body temperature increased [Unknown]
  - Hot flush [Unknown]
  - Night sweats [Unknown]
  - Product administered to patient of inappropriate age [Unknown]
  - Insomnia [Unknown]
  - Mood swings [Unknown]
  - Anxiety [Unknown]
